FAERS Safety Report 4539949-8 (Version None)
Quarter: 2004Q4

REPORT INFORMATION
  Report Type: 
  Country: None (occurrence: None)
  Receive Date: 20041223
  Receipt Date: 20041214
  Transmission Date: 20050328
  Serious: Yes (Other)
  Sender: FDA-Public Use
  Company Number: 2004094796

PATIENT
  Sex: Female

DRUGS (2)
  1. RELPAX [Suspect]
     Indication: MIGRAINE
     Dosage: (40 MG), ORAL
     Route: 048
     Dates: start: 20041101, end: 20041101
  2. CITALOPRAM HYDROBROMIDE [Concomitant]

REACTIONS (7)
  - ABDOMINAL PAIN UPPER [None]
  - ASTHENIA [None]
  - CHILLS [None]
  - DEFAECATION URGENCY [None]
  - FEELING ABNORMAL [None]
  - HYPERHIDROSIS [None]
  - SYNCOPE [None]
